FAERS Safety Report 18622687 (Version 3)
Quarter: 2020Q4

REPORT INFORMATION
  Report Type: Spontaneous
  Country: US (occurrence: US)
  Receive Date: 20201216
  Receipt Date: 20201224
  Transmission Date: 20210114
  Serious: Yes (Death, Hospitalization, Other)
  Sender: FDA-Public Use
  Company Number: US-AXELLIA-003563

PATIENT
  Age: 54 Year
  Sex: Male
  Weight: 95 kg

DRUGS (2)
  1. VANCOMYCIN [Suspect]
     Active Substance: VANCOMYCIN
     Indication: PRODUCT USED FOR UNKNOWN INDICATION
     Route: 042
     Dates: start: 20201023, end: 20201023
  2. VANCOMYCIN [Suspect]
     Active Substance: VANCOMYCIN
     Indication: BACTERIAL INFECTION
     Dosage: STRENGTH: 1000 MG (500 MG X 2),250 MLS/HR
     Route: 042
     Dates: start: 20201125, end: 20201125

REACTIONS (3)
  - Pruritus [Unknown]
  - Cardiac arrest [Fatal]
  - Unresponsive to stimuli [Unknown]

NARRATIVE: CASE EVENT DATE: 20201023
